FAERS Safety Report 5263607-8 (Version None)
Quarter: 2007Q1

REPORT INFORMATION
  Report Type: 
  Country: None (occurrence: None)
  Receive Date: 20070313
  Receipt Date: 20070301
  Transmission Date: 20070707
  Serious: Yes (Other)
  Sender: FDA-Public Use
  Company Number: IT-ROCHE-485538

PATIENT
  Age: 77 Year
  Sex: Female

DRUGS (1)
  1. ROCEPHIN [Suspect]
     Indication: PNEUMONIA
     Dosage: FORMULATION: VIAL
     Route: 042
     Dates: start: 20070225, end: 20070226

REACTIONS (5)
  - BRONCHOSPASM [None]
  - COMA [None]
  - CYANOSIS [None]
  - ERYTHEMA [None]
  - RESPIRATORY FAILURE [None]
